FAERS Safety Report 13872728 (Version 2)
Quarter: 2017Q3

REPORT INFORMATION
  Report Type: Report from Study
  Country: JP (occurrence: JP)
  Receive Date: 20170816
  Receipt Date: 20170926
  Transmission Date: 20171127
  Serious: Yes (Hospitalization, Disabling)
  Sender: FDA-Public Use
  Company Number: JP-ACTELION-A-CH2017-157770

PATIENT
  Age: 36 Year
  Sex: Female

DRUGS (12)
  1. SPIRONOLACTONE. [Concomitant]
     Active Substance: SPIRONOLACTONE
  2. ALDACTONE [Concomitant]
     Active Substance: SPIRONOLACTONE
  3. XELJANZ [Concomitant]
     Active Substance: TOFACITINIB CITRATE
  4. LASIX [Concomitant]
     Active Substance: FUROSEMIDE
  5. OPSUMIT [Suspect]
     Active Substance: MACITENTAN
     Indication: PULMONARY ARTERIAL HYPERTENSION
     Dosage: 10 MG, OD
     Route: 048
     Dates: start: 20160622
  6. FUROSEMIDE. [Concomitant]
     Active Substance: FUROSEMIDE
  7. FEXOFENADINE [Concomitant]
     Active Substance: FEXOFENADINE\FEXOFENADINE HYDROCHLORIDE
  8. EPOPROSTENOL ACT [Suspect]
     Active Substance: EPOPROSTENOL
     Indication: PULMONARY ARTERIAL HYPERTENSION
     Dosage: 10 NG/KG, PER MIN
     Route: 042
     Dates: start: 20140725
  9. MEDROL [Suspect]
     Active Substance: METHYLPREDNISOLONE
     Indication: MIXED CONNECTIVE TISSUE DISEASE
     Dosage: 8 MG, QD
     Route: 048
     Dates: start: 20140625
  10. ADCIRCA [Concomitant]
     Active Substance: TADALAFIL
  11. NIFEDIPINE. [Concomitant]
     Active Substance: NIFEDIPINE
  12. LOXONIN [Concomitant]
     Active Substance: LOXOPROFEN SODIUM

REACTIONS (4)
  - Osteonecrosis [Recovered/Resolved with Sequelae]
  - Device connection issue [Recovered/Resolved]
  - Gait disturbance [Not Recovered/Not Resolved]
  - Catheter management [Unknown]

NARRATIVE: CASE EVENT DATE: 20161026
